FAERS Safety Report 4437721-0 (Version None)
Quarter: 2004Q3

REPORT INFORMATION
  Report Type: 
  Country: None (occurrence: None)
  Receive Date: 20040831
  Receipt Date: 20040614
  Transmission Date: 20050211
  Serious: No
  Sender: FDA-Public Use
  Company Number: 17368

PATIENT
  Age: 68 Year
  Sex: Female

DRUGS (2)
  1. ZOVIRAX [Suspect]
     Dosage: 1APP FIVE TIMES PER DAY
     Route: 061
     Dates: start: 20040610
  2. ANTIHYPERTENSIVE (UNSPECIFIED) [Concomitant]

REACTIONS (2)
  - DRUG INEFFECTIVE [None]
  - HERPES SIMPLEX [None]
